FAERS Safety Report 5410794-4 (Version None)
Quarter: 2007Q3

REPORT INFORMATION
  Report Type: 
  Country: None (occurrence: None)
  Receive Date: 20070810
  Receipt Date: 20070604
  Transmission Date: 20080115
  Serious: No
  Sender: FDA-Public Use
  Company Number: A0651954A

PATIENT
  Sex: Female
  Weight: 72.7 kg

DRUGS (5)
  1. PAXIL [Suspect]
     Dosage: 37.5MG PER DAY
     Route: 048
  2. XANAX [Concomitant]
     Indication: PANIC ATTACK
     Dosage: .5MG PER DAY
     Route: 048
  3. METFORMIN HCL [Concomitant]
     Dosage: 1000MG TWICE PER DAY
     Route: 048
  4. PREVACID [Concomitant]
     Dosage: 20MG PER DAY
     Route: 048
  5. VYTORIN [Concomitant]
     Route: 048

REACTIONS (2)
  - DRUG INEFFECTIVE [None]
  - PHARMACEUTICAL PRODUCT COMPLAINT [None]
